FAERS Safety Report 14559507 (Version 1)
Quarter: 2018Q1

REPORT INFORMATION
  Report Type: Report from Study
  Country: DE (occurrence: DE)
  Receive Date: 20180221
  Receipt Date: 20180221
  Transmission Date: 20180509
  Serious: Yes (Other)
  Sender: FDA-Public Use
  Company Number: DE-PFIZER INC-2018069906

PATIENT
  Sex: Female
  Weight: 85 kg

DRUGS (3)
  1. EXEMESTANE. [Suspect]
     Active Substance: EXEMESTANE
     Indication: BREAST CANCER METASTATIC
     Dosage: 25 MG, QD
     Route: 048
     Dates: start: 20160225
  2. AFINITOR [Suspect]
     Active Substance: EVEROLIMUS
     Indication: BREAST CANCER METASTATIC
     Dosage: 10 MG, QD
     Route: 048
     Dates: start: 20160225, end: 20160615
  3. AFINITOR [Suspect]
     Active Substance: EVEROLIMUS
     Dosage: 5 MG, QD
     Route: 048
     Dates: start: 20160803, end: 20170203

REACTIONS (5)
  - Erythema [Recovered/Resolved]
  - Diarrhoea [Recovered/Resolved]
  - Rash [Recovered/Resolved]
  - Stomatitis [Recovered/Resolved]
  - Blood phosphorus decreased [Unknown]

NARRATIVE: CASE EVENT DATE: 20160310
